FAERS Safety Report 12574959 (Version 5)
Quarter: 2017Q1

REPORT INFORMATION
  Report Type: Report from Study
  Country: BR (occurrence: BR)
  Receive Date: 20160720
  Receipt Date: 20170315
  Transmission Date: 20170428
  Serious: Yes (Other)
  Sender: FDA-Public Use
  Company Number: BR-JNJFOC-20160712326

PATIENT
  Sex: Female

DRUGS (2)
  1. IMBRUVICA [Suspect]
     Active Substance: IBRUTINIB
     Indication: LYMPHOCYTIC LYMPHOMA
     Route: 048
     Dates: start: 20151215
  2. IMBRUVICA [Suspect]
     Active Substance: IBRUTINIB
     Indication: CHRONIC LYMPHOCYTIC LEUKAEMIA
     Route: 048
     Dates: start: 20151215

REACTIONS (13)
  - Anaemia [Not Recovered/Not Resolved]
  - Nasal dryness [Unknown]
  - Vomiting [Unknown]
  - Malaise [Unknown]
  - Urticaria [Unknown]
  - Eating disorder symptom [Unknown]
  - Depressed mood [Recovered/Resolved]
  - Haemorrhage [Unknown]
  - Skin mass [Recovered/Resolved]
  - Rash erythematous [Not Recovered/Not Resolved]
  - Hypersensitivity [Recovered/Resolved]
  - Temperature intolerance [Unknown]
  - Fatigue [Not Recovered/Not Resolved]

NARRATIVE: CASE EVENT DATE: 2016
